FAERS Safety Report 13716811 (Version 1)
Quarter: 2017Q3

REPORT INFORMATION
  Report Type: Spontaneous
  Country: US (occurrence: US)
  Receive Date: 20170703
  Receipt Date: 20170703
  Transmission Date: 20171127
  Serious: Yes (Life-Threatening, Hospitalization, Disabling, Other)
  Sender: FDA-Public Use
  Company Number: None

PATIENT
  Age: 53 Year
  Sex: Female
  Weight: 54.9 kg

DRUGS (12)
  1. VYVANSE [Concomitant]
     Active Substance: LISDEXAMFETAMINE DIMESYLATE
  2. TOPOMAX ER [Concomitant]
  3. QUERCETIN [Concomitant]
     Active Substance: QUERCETIN
  4. BOTOX [Suspect]
     Active Substance: ONABOTULINUMTOXINA
     Indication: HEMIPLEGIC MIGRAINE
     Dosage: ?          OTHER STRENGTH:MG;OTHER FREQUENCY:3 MONTHS;?
     Route: 058
     Dates: start: 20170607
  5. MIRAPEX [Concomitant]
     Active Substance: PRAMIPEXOLE DIHYDROCHLORIDE
  6. MAGNESIUM [Concomitant]
     Active Substance: MAGNESIUM
  7. KLONOPIN [Concomitant]
     Active Substance: CLONAZEPAM
  8. KETOTIFEN [Concomitant]
     Active Substance: KETOTIFEN
  9. RANITIDINE. [Concomitant]
     Active Substance: RANITIDINE
  10. VITAMIN D [Concomitant]
     Active Substance: CHOLECALCIFEROL
  11. CYTOMEL [Concomitant]
     Active Substance: LIOTHYRONINE SODIUM
  12. SYNTHROID [Concomitant]
     Active Substance: LEVOTHYROXINE SODIUM

REACTIONS (4)
  - Unresponsive to stimuli [None]
  - Dysphagia [None]
  - Dyspnoea [None]
  - Autonomic nervous system imbalance [None]

NARRATIVE: CASE EVENT DATE: 20170607
